FAERS Safety Report 7170008-4 (Version None)
Quarter: 2010Q4

REPORT INFORMATION
  Report Type: 
  Country: None (occurrence: None)
  Receive Date: 20101217
  Receipt Date: 20101111
  Transmission Date: 20110411
  Serious: No
  Sender: FDA-Public Use
  Company Number: US-BAYER-2010-003750

PATIENT
  Sex: Female
  Weight: 73 kg

DRUGS (8)
  1. ASPIRIN [Suspect]
  2. ALENDRONATE SODIUM [Concomitant]
  3. ATENOLOL [Concomitant]
  4. AMLODIPINE [Concomitant]
  5. LISINOPRIL [Concomitant]
  6. HYDROCHLOROTHIAZIDE [Concomitant]
  7. FENOFIBRATE [Concomitant]
  8. CALCITRIOL [Concomitant]

REACTIONS (1)
  - NAUSEA [None]
